FAERS Safety Report 21602135 (Version 1)
Quarter: 2022Q4

REPORT INFORMATION
  Report Type: Spontaneous
  Country: CA (occurrence: CA)
  Receive Date: 20221116
  Receipt Date: 20221116
  Transmission Date: 20230113
  Serious: Yes (Hospitalization)
  Sender: FDA-Public Use
  Company Number: None

PATIENT
  Age: 40 Year
  Sex: Male

DRUGS (2)
  1. CARBOPLATIN [Suspect]
     Active Substance: CARBOPLATIN
     Indication: Oropharyngeal cancer stage IV
     Route: 042
  2. FLUOROURACIL [Suspect]
     Active Substance: FLUOROURACIL
     Indication: Oropharyngeal cancer stage IV
     Dosage: INTRAVENOUS DRIP; 1 EVERY 1 DAYS
     Route: 042

REACTIONS (5)
  - Dysphagia [Unknown]
  - Febrile neutropenia [Unknown]
  - Laryngeal pain [Unknown]
  - Mucosal inflammation [Unknown]
  - Neutropenia [Unknown]
